FAERS Safety Report 7512759-5 (Version None)
Quarter: 2011Q2

REPORT INFORMATION
  Report Type: 
  Country: None (occurrence: None)
  Receive Date: 20110531
  Receipt Date: 20110519
  Transmission Date: 20111010
  Serious: Yes (Disabling, Other)
  Sender: FDA-Public Use
  Company Number: A0925789A

PATIENT
  Age: 89 Year
  Sex: Male
  Weight: 92.7 kg

DRUGS (9)
  1. TRIMETHOPRIM [Concomitant]
  2. PROPAFENONE HCL [Suspect]
     Indication: ATRIAL FIBRILLATION
     Dosage: 150MG AS REQUIRED
     Route: 048
     Dates: start: 20050101, end: 20110418
  3. TOPROL-XL [Concomitant]
  4. PROTOPIC [Concomitant]
  5. AVODART [Concomitant]
  6. PRAVASTATIN [Concomitant]
  7. CEPHALOSPORIN [Concomitant]
  8. LISINOPRIL [Concomitant]
  9. LEVOTHYROXINE SODIUM [Concomitant]

REACTIONS (1)
  - PULMONARY FIBROSIS [None]
